FAERS Safety Report 7478369-3 (Version None)
Quarter: 2011Q2

REPORT INFORMATION
  Report Type: 
  Country: None (occurrence: None)
  Receive Date: 20110513
  Receipt Date: 20100603
  Transmission Date: 20111010
  Serious: No
  Sender: FDA-Public Use
  Company Number: US-PFIZER INC-2005075537

PATIENT
  Sex: Male

DRUGS (3)
  1. ACETYLSALICYLIC ACID SRT [Suspect]
     Dosage: 625 MG, 1X/DAY
     Route: 048
  2. LYRICA [Suspect]
     Indication: NEURALGIA
     Dosage: 150MG MANE +300MG NOCT
     Route: 048
     Dates: start: 20090101
  3. CELEBREX [Suspect]
     Dosage: 200 MG, 1X/DAY
     Route: 048

REACTIONS (3)
  - DRUG INEFFECTIVE [None]
  - PAIN IN EXTREMITY [None]
  - DYSPEPSIA [None]
